FAERS Safety Report 5175299-7 (Version None)
Quarter: 2006Q4

REPORT INFORMATION
  Report Type: 
  Country: None (occurrence: None)
  Receive Date: 20061211
  Receipt Date: 20061211
  Transmission Date: 20070319
  Serious: Yes (Death)
  Sender: FDA-Public Use
  Company Number: None

PATIENT
  Age: 30 Year
  Sex: Female
  Weight: 165 kg

DRUGS (4)
  1. OMNIPAQUE 140 [Suspect]
     Indication: DIAGNOSTIC PROCEDURE
     Dosage: 430 ML OVER 8 DAYS   IV BOLUS
     Route: 040
     Dates: start: 20061117, end: 20061124
  2. GASTROVIEW [Suspect]
     Indication: DIAGNOSTIC PROCEDURE
     Dosage: 25 ML ONCE
     Dates: start: 20061117, end: 20061117
  3. HYDROCHLOROTHIAZIDE [Concomitant]
  4. DEMEROL [Concomitant]

REACTIONS (6)
  - DEHYDRATION [None]
  - DIALYSIS [None]
  - DYSPNOEA [None]
  - GENERAL PHYSICAL HEALTH DETERIORATION [None]
  - PULMONARY EMBOLISM [None]
  - RENAL FAILURE [None]
